FAERS Safety Report 8459116-5 (Version None)
Quarter: 2012Q2

REPORT INFORMATION
  Report Type: 
  Country: None (occurrence: None)
  Receive Date: 20120618
  Receipt Date: 20120609
  Transmission Date: 20120825
  Serious: Yes (Other)
  Sender: FDA-Public Use
  Company Number: ADR-2012-01115

PATIENT
  Sex: Male

DRUGS (3)
  1. BACLOFEN [Suspect]
     Indication: POST LAMINECTOMY SYNDROME
     Route: 037
  2. BACLOFEN [Suspect]
     Indication: PAIN
     Route: 037
  3. SEE IMAGE [Concomitant]

REACTIONS (5)
  - SCIATICA [None]
  - PAIN [None]
  - PRURITUS [None]
  - DEVICE DISLOCATION [None]
  - HAEMATOMA [None]
